FAERS Safety Report 5110838-3 (Version None)
Quarter: 2006Q3

REPORT INFORMATION
  Report Type: 
  Country: None (occurrence: None)
  Receive Date: 20060919
  Receipt Date: 20060907
  Transmission Date: 20061208
  Serious: Yes (Hospitalization)
  Sender: FDA-Public Use
  Company Number: B0437003A

PATIENT
  Sex: 0

DRUGS (4)
  1. DIGOXIN [Suspect]
     Indication: DRUG USE FOR UNKNOWN INDICATION
     Dosage: 5 MCG/KG / PER DAY / ORAL
     Route: 048
  2. JOSAMYCIN (JOSAMYCIN) [Suspect]
     Indication: DRUG USE FOR UNKNOWN INDICATION
     Dosage: 50 MG/KG PER DAY
  3. FUROSEMIDE [Concomitant]
  4. CAPTOPRIL [Concomitant]

REACTIONS (13)
  - BLOOD PRESSURE DECREASED [None]
  - BORDETELLA INFECTION [None]
  - BRADYCARDIA [None]
  - CARDIAC FAILURE [None]
  - DRUG INTERACTION [None]
  - FLUID OVERLOAD [None]
  - HYPERCAPNIA [None]
  - HYPOKALAEMIA [None]
  - PERTUSSIS [None]
  - RESPIRATORY ACIDOSIS [None]
  - RESPIRATORY DISTRESS [None]
  - SINOATRIAL BLOCK [None]
  - THERAPEUTIC AGENT TOXICITY [None]
